FAERS Safety Report 14081617 (Version 1)
Quarter: 2017Q4

REPORT INFORMATION
  Report Type: Spontaneous
  Country: AU (occurrence: AU)
  Receive Date: 20171013
  Receipt Date: 20171013
  Transmission Date: 20180321
  Serious: Yes (Other)
  Sender: FDA-Public Use
  Company Number: AU-ALLERGAN-1757657US

PATIENT
  Age: 41 Year
  Sex: Female

DRUGS (2)
  1. ELEVIT [Suspect]
     Active Substance: FOLIC ACID\IRON\MINERALS\VITAMINS
     Indication: PRODUCT USED FOR UNKNOWN INDICATION
     Route: 065
  2. ASENAPINE MALEATE - BP [Suspect]
     Active Substance: ASENAPINE MALEATE
     Indication: PRODUCT USED FOR UNKNOWN INDICATION
     Dosage: 10 MG, QD
     Route: 048

REACTIONS (4)
  - Abortion spontaneous incomplete [Recovered/Resolved]
  - Incorrect route of drug administration [Unknown]
  - Pregnancy [Unknown]
  - Retained products of conception [Recovered/Resolved]

NARRATIVE: CASE EVENT DATE: 20161120
